FAERS Safety Report 15064728 (Version 1)
Quarter: 2018Q2

REPORT INFORMATION
  Report Type: Report from Study
  Country: CN (occurrence: CN)
  Receive Date: 20180625
  Receipt Date: 20180625
  Transmission Date: 20180711
  Serious: Yes (Other)
  Sender: FDA-Public Use
  Company Number: CN-ROCHE-2129070

PATIENT
  Sex: Male
  Weight: 45 kg

DRUGS (1)
  1. AVASTIN [Suspect]
     Active Substance: BEVACIZUMAB
     Indication: COLON CANCER
     Route: 041
     Dates: start: 20170803

REACTIONS (5)
  - Bile duct obstruction [Unknown]
  - Cholangitis [Unknown]
  - Pyrexia [Unknown]
  - Liver function test abnormal [Unknown]
  - Nasopharyngitis [Unknown]
